FAERS Safety Report 5173793-6 (Version None)
Quarter: 2006Q4

REPORT INFORMATION
  Report Type: 
  Country: None (occurrence: None)
  Receive Date: 20061214
  Receipt Date: 20061208
  Transmission Date: 20070319
  Serious: Yes (Other)
  Sender: FDA-Public Use
  Company Number: US-GLAXOSMITHKLINE-A0630938A

PATIENT
  Age: 19 Year
  Sex: Female

DRUGS (2)
  1. BUPROPION HYDROCHLORIDE [Suspect]
     Indication: BIPOLAR DISORDER
     Route: 048
     Dates: start: 20060401
  2. PSEUDOEPHEDRINE HCL [Concomitant]

REACTIONS (9)
  - BRUXISM [None]
  - CONVULSION [None]
  - DRUG EXPOSURE DURING PREGNANCY [None]
  - NAUSEA [None]
  - PHARMACEUTICAL PRODUCT COMPLAINT [None]
  - POSTURE ABNORMAL [None]
  - SPEECH DISORDER [None]
  - TONGUE BITING [None]
  - TREMOR [None]
